FAERS Safety Report 7485178-8 (Version None)
Quarter: 2011Q2

REPORT INFORMATION
  Report Type: 
  Country: None (occurrence: None)
  Receive Date: 20110517
  Receipt Date: 20101207
  Transmission Date: 20111010
  Serious: No
  Sender: FDA-Public Use
  Company Number: US-BAYER-2010-008291

PATIENT

DRUGS (1)
  1. MAGNEVIST [Suspect]

REACTIONS (3)
  - NAUSEA [None]
  - VOMITING [None]
  - SNEEZING [None]
